FAERS Safety Report 8041614-X (Version None)
Quarter: 2012Q1

REPORT INFORMATION
  Report Type: 
  Country: None (occurrence: None)
  Receive Date: 20120112
  Receipt Date: 20120110
  Transmission Date: 20120608
  Serious: Yes (Death)
  Sender: FDA-Public Use
  Company Number: IN-JNJFOC-20111210211

PATIENT
  Age: 45 Year
  Sex: Male

DRUGS (3)
  1. ITRACONAZOLE [Suspect]
     Indication: BRONCHOPULMONARY ASPERGILLOSIS
     Route: 042
  2. METRONIDAZOLE [Concomitant]
     Route: 042
  3. PIPERACILLIN AND TAZOBACTAM [Concomitant]
     Route: 042

REACTIONS (1)
  - BRONCHOPULMONARY ASPERGILLOSIS [None]
